FAERS Safety Report 11605477 (Version 3)
Quarter: 2016Q1

REPORT INFORMATION
  Report Type: Report from Study
  Country: US (occurrence: US)
  Receive Date: 20151007
  Receipt Date: 20160210
  Transmission Date: 20160525
  Serious: Yes (Hospitalization, Other)
  Sender: FDA-Public Use
  Company Number: US-BAXTER-2014BAX031574

PATIENT
  Age: 16 Year
  Sex: Female
  Weight: 72.37 kg

DRUGS (17)
  1. HYDROCORTISONE ACETATE. [Suspect]
     Active Substance: HYDROCORTISONE ACETATE
     Indication: ANAPLASTIC LARGE CELL LYMPHOMA T- AND NULL-CELL TYPES
     Dosage: PROPHASE, CYCLE 0, ON DAY 1, 7.5-12 MG, (AGE BASED DOSING)
     Route: 037
     Dates: start: 20140106, end: 20140106
  2. CYTARABINE. [Suspect]
     Active Substance: CYTARABINE
     Indication: ANAPLASTIC LARGE CELL LYMPHOMA T- AND NULL-CELL TYPES
     Dosage: PROPHASE, CYCLE 0, ON DAY 1, 15-24 MG (AGE BASED DOSING)
     Route: 037
     Dates: start: 20140106, end: 20140106
  3. METHOTREXATE [Suspect]
     Active Substance: METHOTREXATE
     Indication: ANAPLASTIC LARGE CELL LYMPHOMA T- AND NULL-CELL TYPES
     Dosage: PROPHASE, CYCLE 0, ON DAY 1, 7.5-12 MG (AGE BASED DOSING)
     Route: 037
     Dates: start: 20140106, end: 20140106
  4. CYCLOPHOSPHAMIDE FOR INJECTION, USP [Suspect]
     Active Substance: CYCLOPHOSPHAMIDE
     Indication: ANAPLASTIC LARGE CELL LYMPHOMA T- AND NULL-CELL TYPES
     Dosage: PROPHASE, CYCLE 0, DAY 1 AND 2, OVER 30-60 MINUTES
     Route: 042
     Dates: start: 20140106, end: 20140107
  5. CRIZOTINIB [Suspect]
     Active Substance: CRIZOTINIB
     Indication: ANAPLASTIC LARGE CELL LYMPHOMA T- AND NULL-CELL TYPES
     Dosage: COURSE A, CYCLE 1, ON DAYS 1-21, SECOND DOSE NOT REPEATED (PER PROTOCOL TWICE DAILY)
     Route: 048
     Dates: start: 20140111, end: 20140111
  6. IFOSFAMIDE FOR INJECTION [Suspect]
     Active Substance: IFOSFAMIDE
     Indication: ANAPLASTIC LARGE CELL LYMPHOMA T- AND NULL-CELL TYPES
     Dosage: COURSE A, CYCLE 1, ON DAYS 1-5, OVER 60 MINUTES
     Route: 042
     Dates: start: 20140111, end: 20140115
  7. CRIZOTINIB [Suspect]
     Active Substance: CRIZOTINIB
     Dosage: COURSE A, CYCLE 1, TWICE DAILY ON DAYS 1-21, RESTARTED AT PREVIOUS LOWER DOSE
     Route: 048
     Dates: start: 20140127
  8. CYTARABINE. [Suspect]
     Active Substance: CYTARABINE
     Dosage: CYCLE A, CYCLES 1 OVER 1 HOUR 30 MINUTES ON DAY 4 AND 5 (TOTAL 4 DOSES)
     Route: 042
     Dates: start: 20140114, end: 20140115
  9. DEXAMETHASONE. [Suspect]
     Active Substance: DEXAMETHASONE
     Indication: ANAPLASTIC LARGE CELL LYMPHOMA T- AND NULL-CELL TYPES
     Dosage: PROPHASE, CYCLE 0, ON DAYS 1-2, DAILY
     Route: 048
     Dates: start: 20140106
  10. METHOTREXATE [Suspect]
     Active Substance: METHOTREXATE
     Dosage: COURSE A, CYCLE 1, ON DAY 1, OVER 3 HOURS
     Route: 042
     Dates: start: 20140111, end: 20140111
  11. DEXAMETHASONE. [Suspect]
     Active Substance: DEXAMETHASONE
     Dosage: PROPHASE, CYCLE 0, ON DAYS 3-5, TWICE DAILY
     Route: 048
     Dates: end: 20140110
  12. ETOPOSIDE. [Suspect]
     Active Substance: ETOPOSIDE
     Indication: ANAPLASTIC LARGE CELL LYMPHOMA T- AND NULL-CELL TYPES
     Dosage: CYCLE A, CYCLE 1, OVER 2 HOURS ON DAY 4 AND 5
     Route: 042
     Dates: start: 20140114, end: 20140115
  13. CRIZOTINIB [Suspect]
     Active Substance: CRIZOTINIB
     Dosage: COURSE A, CYCLE 1, TWICE DAILY ON DAYS 1-21
     Route: 048
     Dates: start: 20140112, end: 20140116
  14. CRIZOTINIB [Suspect]
     Active Substance: CRIZOTINIB
     Dosage: COURSE A, CYCLE 1, TWICE DAILY ON DAYS 1-21, RESTARTED ON LOWER DOSE
     Route: 048
     Dates: start: 20140122, end: 20140124
  15. DEXAMETHASONE. [Suspect]
     Active Substance: DEXAMETHASONE
     Dosage: COURSE A, CYCLE 1, ON DAYS 1-5, TWICE DAILY
     Route: 048
     Dates: start: 20140111, end: 20140115
  16. ZOFRAN [Concomitant]
     Active Substance: ONDANSETRON HYDROCHLORIDE
     Indication: NAUSEA
     Route: 065
  17. BACTRIM [Concomitant]
     Active Substance: SULFAMETHOXAZOLE\TRIMETHOPRIM
     Indication: PRODUCT USED FOR UNKNOWN INDICATION
     Route: 065
     Dates: start: 20140111

REACTIONS (5)
  - Generalised tonic-clonic seizure [Recovered/Resolved]
  - Posterior reversible encephalopathy syndrome [Recovered/Resolved]
  - Ileus [Recovered/Resolved]
  - Colitis [Recovered/Resolved]
  - Vomiting [Recovered/Resolved]

NARRATIVE: CASE EVENT DATE: 20140111
